FAERS Safety Report 5676200-X (Version None)
Quarter: 2008Q1

REPORT INFORMATION
  Report Type: 
  Country: None (occurrence: None)
  Receive Date: 20080321
  Receipt Date: 20080311
  Transmission Date: 20080703
  Serious: Yes (Other)
  Sender: FDA-Public Use
  Company Number: US-PFIZER INC-2008023300

PATIENT
  Sex: Female
  Weight: 102.1 kg

DRUGS (11)
  1. CHANTIX [Suspect]
     Indication: SMOKING CESSATION THERAPY
     Dates: start: 20080101, end: 20080101
  2. ALL OTHER THERAPEUTIC PRODUCTS [Concomitant]
  3. XOPENEX [Concomitant]
  4. SYNACORT [Concomitant]
  5. NASONEX [Concomitant]
  6. LISINOPRIL [Concomitant]
  7. SINGULAIR [Concomitant]
  8. PULMICORT [Concomitant]
  9. STRATTERA [Concomitant]
  10. VYTORIN [Concomitant]
  11. ZOMIG [Concomitant]

REACTIONS (1)
  - HAEMOPTYSIS [None]
